FAERS Safety Report 13769975 (Version 1)
Quarter: 2017Q3

REPORT INFORMATION
  Report Type: Spontaneous
  Country: TR (occurrence: TR)
  Receive Date: 20170719
  Receipt Date: 20170719
  Transmission Date: 20171127
  Serious: Yes (Other)
  Sender: FDA-Public Use
  Company Number: TR-IMPAX LABORATORIES, INC-2017-IPXL-02081

PATIENT
  Age: 45 Year
  Sex: Male

DRUGS (2)
  1. OXYBUTYNIN CHLORIDE ER [Suspect]
     Active Substance: OXYBUTYNIN CHLORIDE
     Indication: HYPERTONIC BLADDER
     Dosage: UNK
     Route: 065
  2. OXYBUTYNIN CHLORIDE ER [Suspect]
     Active Substance: OXYBUTYNIN CHLORIDE
     Indication: DRUG USE DISORDER
     Dosage: 60-80 TABLETS DAILY (300-400 MG)
     Route: 065

REACTIONS (6)
  - Drug dependence [Unknown]
  - Secretion discharge [Unknown]
  - Dry mouth [Unknown]
  - Drug withdrawal syndrome [Unknown]
  - Anxiety [Unknown]
  - Boredom [Unknown]
